FAERS Safety Report 4645667-8 (Version None)
Quarter: 2005Q2

REPORT INFORMATION
  Report Type: 
  Country: None (occurrence: None)
  Receive Date: 20050331
  Receipt Date: 20050222
  Transmission Date: 20051028
  Serious: No
  Sender: FDA-Public Use
  Company Number: 05P-163-0291629-00

PATIENT
  Age: 67 Year
  Sex: Male
  Weight: 77.1115 kg

DRUGS (8)
  1. HUMIRA [Suspect]
     Indication: RHEUMATOID ARTHRITIS
     Dosage: 40 MG, 1 IN 2 WK, SUBCUTANEOUS
     Route: 058
     Dates: start: 20030421
  2. LORATADINE [Concomitant]
  3. METHOTREXATE [Concomitant]
  4. TOPROL-XL [Concomitant]
  5. ATORVASTATIN CALCIUM [Concomitant]
  6. C529 [Concomitant]
  7. FOLIC ACID [Concomitant]
  8. CALCIUM GLUCONATE [Concomitant]

REACTIONS (3)
  - COUGH [None]
  - GINGIVITIS [None]
  - RHINORRHOEA [None]
